FAERS Safety Report 11116852 (Version 3)
Quarter: 2015Q3

REPORT INFORMATION
  Report Type: Report from Study
  Country: US (occurrence: US)
  Receive Date: 20150515
  Receipt Date: 20150818
  Transmission Date: 20151125
  Serious: Yes (Hospitalization)
  Sender: FDA-Public Use
  Company Number: US-ACTELION-A-NJ2015-117775

PATIENT
  Age: 52 Year
  Sex: Male

DRUGS (11)
  1. MACITENTAN [Suspect]
     Active Substance: MACITENTAN
     Indication: PULMONARY HYPERTENSION
     Dosage: UNK, QD
     Route: 048
     Dates: start: 20150415
  2. SIMVASTATIN. [Concomitant]
     Active Substance: SIMVASTATIN
     Dosage: 40 MG, QD
  3. CLONAZEPAM. [Concomitant]
     Active Substance: CLONAZEPAM
     Dosage: 1 MG, QD
  4. RENVELA [Concomitant]
     Active Substance: SEVELAMER CARBONATE
     Dosage: 0.8 G, QD
  5. GABAPENTIN. [Concomitant]
     Active Substance: GABAPENTIN
     Dosage: 300 MG, QD
  6. ZANTAC [Concomitant]
     Active Substance: RANITIDINE HYDROCHLORIDE
     Dosage: 300 MG, QD
  7. HYDRALAZINE HCL [Concomitant]
     Active Substance: HYDRALAZINE HYDROCHLORIDE
     Dosage: 50 MG, BID
  8. BENTYL [Concomitant]
     Active Substance: DICYCLOMINE HYDROCHLORIDE
     Dosage: 20 MG, TID
  9. BENZONATATE. [Concomitant]
     Active Substance: BENZONATATE
     Dosage: 100 MG, TID
  10. DILTIAZEM HCL EXTE-REL [Concomitant]
     Dosage: 180 MG, QD
  11. ASPIRIN. [Concomitant]
     Active Substance: ASPIRIN
     Dosage: 81 MG, QD

REACTIONS (9)
  - Appendicitis [Recovered/Resolved]
  - Haemodialysis [Unknown]
  - Toe amputation [Not Recovered/Not Resolved]
  - Postoperative wound infection [Not Recovered/Not Resolved]
  - Vision blurred [Not Recovered/Not Resolved]
  - Vein disorder [Not Recovered/Not Resolved]
  - Infected skin ulcer [Recovering/Resolving]
  - Leg amputation [Recovering/Resolving]
  - Appendicectomy [Recovered/Resolved]

NARRATIVE: CASE EVENT DATE: 20150510
